FAERS Safety Report 23938088 (Version 2)
Quarter: 2024Q2

REPORT INFORMATION
  Report Type: Spontaneous
  Country: DE (occurrence: DE)
  Receive Date: 20240604
  Receipt Date: 20240611
  Transmission Date: 20240715
  Serious: Yes (Other)
  Sender: FDA-Public Use
  Company Number: DE-ASTELLAS-2024US014756

PATIENT
  Age: 61 Year
  Sex: Female

DRUGS (3)
  1. BUSULFAN [Interacting]
     Active Substance: BUSULFAN
     Indication: Product used for unknown indication
     Dosage: UNK UNK, UNKNOWN FREQ.
     Route: 065
     Dates: start: 202401
  2. FLUDARABINE [Interacting]
     Active Substance: FLUDARABINE PHOSPHATE
     Indication: Product used for unknown indication
     Dosage: UNK
     Route: 065
     Dates: start: 202401
  3. XOSPATA [Interacting]
     Active Substance: GILTERITINIB
     Indication: Acute myeloid leukaemia
     Dosage: UNK UNK, UNKNOWN FREQ.
     Route: 065
     Dates: start: 202310, end: 202401

REACTIONS (17)
  - Oesophageal intramural haematoma [Unknown]
  - Melaena [Unknown]
  - Renal failure [Unknown]
  - Thrombocytopenia [Unknown]
  - Cystitis haemorrhagic [Unknown]
  - Acute myeloid leukaemia recurrent [Unknown]
  - Oesophagitis [Unknown]
  - Female reproductive tract disorder [Unknown]
  - Diarrhoea [Unknown]
  - Mucosal disorder [Unknown]
  - Mucosal inflammation [Unknown]
  - Vomiting [Unknown]
  - Decreased appetite [Unknown]
  - Drug interaction [Unknown]
  - Off label use [Unknown]
  - Drug intolerance [Unknown]
  - Product use issue [Unknown]

NARRATIVE: CASE EVENT DATE: 20240101
